FAERS Safety Report 5553659-X (Version None)
Quarter: 2007Q4

REPORT INFORMATION
  Report Type: 
  Country: None (occurrence: None)
  Receive Date: 20071213
  Receipt Date: 20071205
  Transmission Date: 20080405
  Serious: Yes (Other)
  Sender: FDA-Public Use
  Company Number: PHBS2007BR19867

PATIENT
  Age: 74 Year
  Sex: Male
  Weight: 80 kg

DRUGS (5)
  1. SLOW-K [Suspect]
     Indication: MYALGIA
     Dosage: 600MG, QD
     Route: 048
     Dates: start: 20051101
  2. MAREVAN [Concomitant]
     Dosage: 5 MG, QD
     Route: 048
     Dates: start: 20010101
  3. DIGOXIN [Concomitant]
     Dosage: 0.25 MG, QD
     Route: 048
     Dates: start: 20010101
  4. SIMVASTATIN [Concomitant]
     Dosage: 10 MG, QOD
  5. ZYLORIC [Concomitant]
     Indication: URINE URIC ACID INCREASED
     Dosage: 100 MG, QD
     Dates: end: 20070801

REACTIONS (2)
  - GLUCOSE TOLERANCE IMPAIRED [None]
  - TENDONITIS [None]
